FAERS Safety Report 11874514 (Version 1)
Quarter: 2015Q4

REPORT INFORMATION
  Report Type: Spontaneous
  Country: US (occurrence: US)
  Receive Date: 20151229
  Receipt Date: 20151229
  Transmission Date: 20160305
  Serious: No
  Sender: FDA-Public Use
  Company Number: PHEH2015US007625

PATIENT
  Age: 50 Year
  Sex: Female

DRUGS (1)
  1. CARBAMAZEPINE. [Suspect]
     Active Substance: CARBAMAZEPINE
     Indication: PRODUCT USED FOR UNKNOWN INDICATION
     Dosage: ONE TABLET MORNING AND EVENING (ER)
     Route: 065
     Dates: start: 20150406, end: 20150409

REACTIONS (2)
  - Drug level increased [Unknown]
  - Dizziness [Unknown]

NARRATIVE: CASE EVENT DATE: 20150406
